FAERS Safety Report 10642893 (Version 8)
Quarter: 2015Q4

REPORT INFORMATION
  Report Type: Spontaneous
  Country: US (occurrence: US)
  Receive Date: 20141210
  Receipt Date: 20151022
  Transmission Date: 20160304
  Serious: Yes (Other)
  Sender: FDA-Public Use
  Company Number: US-PFIZER INC-2014334175

PATIENT
  Age: 66 Year
  Sex: Female
  Weight: 97 kg

DRUGS (10)
  1. LOVENOX [Concomitant]
     Active Substance: ENOXAPARIN SODIUM
     Dosage: UNK
  2. METAMUCIL [Concomitant]
     Active Substance: PLANTAGO SEED
     Dosage: UNK
  3. SUTENT [Suspect]
     Active Substance: SUNITINIB MALATE
     Indication: METASTATIC RENAL CELL CARCINOMA
     Dosage: 50 MG, CYCLIC (DAILY FOR 28 DAYS ON/ 14 DAYS OFF)
     Dates: start: 20141022, end: 20150301
  4. SINGULAIR [Concomitant]
     Active Substance: MONTELUKAST SODIUM
     Dosage: UNK
  5. ALBUTEROL. [Concomitant]
     Active Substance: ALBUTEROL
     Dosage: UNK
     Route: 055
  6. ONDANSETRON [Concomitant]
     Active Substance: ONDANSETRON
     Dosage: UNK
  7. ZOFRAN [Concomitant]
     Active Substance: ONDANSETRON HYDROCHLORIDE
     Dosage: UNK
  8. THEOPHYLLINE [Concomitant]
     Active Substance: THEOPHYLLINE ANHYDROUS
     Dosage: UNK
  9. L-LYSINE [Concomitant]
     Active Substance: LYSINE
     Dosage: UNK
  10. PRILOSEC [Concomitant]
     Active Substance: OMEPRAZOLE MAGNESIUM
     Dosage: UNK

REACTIONS (18)
  - Speech disorder [Recovering/Resolving]
  - Dysgeusia [Unknown]
  - Fatigue [Unknown]
  - Diarrhoea [Unknown]
  - Tenderness [Unknown]
  - Dyspepsia [Recovering/Resolving]
  - Diplopia [Unknown]
  - Thrombosis [Recovering/Resolving]
  - Hemiparesis [Recovering/Resolving]
  - Oral pain [Unknown]
  - Oral discomfort [Recovering/Resolving]
  - Decreased appetite [Unknown]
  - Anxiety [Unknown]
  - Oral mucosal blistering [Unknown]
  - Brain oedema [Unknown]
  - Necrosis [Unknown]
  - Blood pressure increased [Unknown]
  - Epistaxis [Unknown]

NARRATIVE: CASE EVENT DATE: 2015
